FAERS Safety Report 6855957-6 (Version None)
Quarter: 2010Q3

REPORT INFORMATION
  Report Type: 
  Country: None (occurrence: None)
  Receive Date: 20100719
  Receipt Date: 20100706
  Transmission Date: 20110219
  Serious: Yes (Other)
  Sender: FDA-Public Use
  Company Number: US-JNJFOC-20100701720

PATIENT
  Age: 47 Year
  Sex: Female

DRUGS (7)
  1. INFLIXIMAB, RECOMBINANT [Suspect]
     Indication: RHEUMATOID ARTHRITIS
     Route: 042
  2. ETANERCEPT [Suspect]
     Indication: RHEUMATOID ARTHRITIS
  3. LEFLUNOMIDE [Concomitant]
  4. PREDNISONE [Concomitant]
  5. MORPHINE SULFATE [Concomitant]
  6. KETOPROFEN [Concomitant]
  7. ROFECOXIB [Concomitant]

REACTIONS (2)
  - MYCOBACTERIUM KANSASII INFECTION [None]
  - TENOSYNOVITIS [None]
